FAERS Safety Report 9593167 (Version 1)
Quarter: 2013Q3

REPORT INFORMATION
  Report Type: Spontaneous
  Country: US (occurrence: None)
  Receive Date: 20130930
  Receipt Date: 20130930
  Transmission Date: 20140515
  Serious: No
  Sender: FDA-Public Use
  Company Number: 1000046563

PATIENT
  Age: 80 Year
  Sex: Female

DRUGS (2)
  1. LINZESS [Suspect]
     Indication: CONSTIPATION
     Dosage: 200 MCG (290 MCG, 1 IN 1 D) ORAL
     Route: 048
     Dates: start: 20130606
  2. LISINOPRIL (LISINOPRIL) (LISINOPRIL) [Concomitant]

REACTIONS (1)
  - Pain in extremity [None]
